FAERS Safety Report 9590711 (Version 1)
Quarter: 2013Q4

REPORT INFORMATION
  Report Type: Spontaneous
  Country: US (occurrence: US)
  Receive Date: 20131003
  Receipt Date: 20131003
  Transmission Date: 20140711
  Serious: No
  Sender: FDA-Public Use
  Company Number: US-AMGEN-USASP2012075169

PATIENT
  Age: 28 Year
  Sex: Female

DRUGS (2)
  1. ENBREL [Suspect]
     Indication: RHEUMATOID ARTHRITIS
     Dosage: UNK UNK, QWK
     Dates: start: 20110804, end: 20121106
  2. HYDROXYCHLOROQUINE [Concomitant]
     Dosage: UNK UNK, BID

REACTIONS (2)
  - Condition aggravated [Unknown]
  - Drug ineffective [Recovered/Resolved]
